FAERS Safety Report 10247670 (Version 2)
Quarter: 2014Q3

REPORT INFORMATION
  Report Type: Spontaneous
  Country: US (occurrence: US)
  Receive Date: 20140619
  Receipt Date: 20140724
  Transmission Date: 20150326
  Serious: Yes (Hospitalization, Other)
  Sender: FDA-Public Use
  Company Number: US-ASTELLAS-2014US006912

PATIENT
  Sex: Female

DRUGS (1)
  1. PROTOPIC [Suspect]
     Active Substance: TACROLIMUS
     Indication: PSORIASIS
     Dosage: UNK, UNKNOWN FREQ.
     Route: 065

REACTIONS (5)
  - Staphylococcal infection [Unknown]
  - Off label use [Unknown]
  - Condition aggravated [Unknown]
  - Asthma [Unknown]
  - Wound infection [Recovered/Resolved]
